FAERS Safety Report 7970951-X (Version None)
Quarter: 2011Q4

REPORT INFORMATION
  Report Type: 
  Country: None (occurrence: None)
  Receive Date: 20111212
  Receipt Date: 20111201
  Transmission Date: 20120403
  Serious: Yes (Death)
  Sender: FDA-Public Use
  Company Number: TW-BAXTER-2011BH037378

PATIENT
  Sex: Male

DRUGS (4)
  1. NUTRINEAL [Suspect]
     Route: 033
     Dates: start: 20080701
  2. NUTRINEAL [Suspect]
     Indication: PERITONEAL DIALYSIS
     Route: 033
     Dates: start: 20080701
  3. DIANEAL [Suspect]
     Indication: PERITONEAL DIALYSIS
     Route: 033
     Dates: start: 20080701
  4. DIANEAL [Suspect]
     Route: 033
     Dates: start: 20080701

REACTIONS (1)
  - NEOPLASM MALIGNANT [None]
